FAERS Safety Report 9580274 (Version 1)
Quarter: 2013Q3

REPORT INFORMATION
  Report Type: Spontaneous
  Country: FR (occurrence: None)
  Receive Date: 20130916
  Receipt Date: 20130916
  Transmission Date: 20140515
  Serious: Yes (Other)
  Sender: FDA-Public Use
  Company Number: JPI-P-032796

PATIENT
  Age: 47 Year
  Sex: Female

DRUGS (2)
  1. XYREM [Suspect]
     Indication: HYPERSOMNIA
     Dosage: 1 GM (0.5 GM, 2 IN 1 D), ORAL
     Route: 048
     Dates: start: 20130426, end: 20130503
  2. METHYLPHENIDATE HYDROCHLORIDE) [Concomitant]

REACTIONS (6)
  - Suicidal ideation [None]
  - Depression [None]
  - Crying [None]
  - Irritability [None]
  - Angina pectoris [None]
  - Sleep inertia [None]
